FAERS Safety Report 9614435 (Version 1)
Quarter: 2013Q4

REPORT INFORMATION
  Report Type: Spontaneous
  Country: US (occurrence: None)
  Receive Date: 20131009
  Receipt Date: 20131009
  Transmission Date: 20140711
  Serious: Yes (Hospitalization)
  Sender: FDA-Public Use
  Company Number: None

PATIENT
  Age: 57 Year
  Sex: Female
  Weight: 61.9 kg

DRUGS (16)
  1. COUMADIN [Suspect]
     Dosage: 1 TABLET, QD, PO
     Route: 048
     Dates: start: 20130830, end: 20130831
  2. COUMADIN [Suspect]
     Dosage: 1 TABLET QD PO
     Route: 048
     Dates: start: 20130901, end: 20130903
  3. CEFEPIME [Concomitant]
  4. CARISOPRODOL [Concomitant]
  5. CYCLOBENAZPRINE [Concomitant]
  6. FENTANYL [Concomitant]
  7. FERROUS SULFATE [Concomitant]
  8. HYDROMORPHONE [Concomitant]
  9. LORAZEPAM [Concomitant]
  10. MORPHINE [Concomitant]
  11. OLANZAPINE [Concomitant]
  12. ONDANSETRON [Concomitant]
  13. PANTOPRAZOLE [Concomitant]
  14. POTASSIUM CHLORIDE [Concomitant]
  15. PROMETHAZINE [Concomitant]
  16. VANCOMYCIN ORAL [Concomitant]

REACTIONS (1)
  - International normalised ratio increased [None]
